FAERS Safety Report 11557638 (Version 2)
Quarter: 2015Q3

REPORT INFORMATION
  Report Type: Spontaneous
  Country: US (occurrence: US)
  Receive Date: 20150927
  Receipt Date: 20150930
  Transmission Date: 20151125
  Serious: No
  Sender: FDA-Public Use
  Company Number: US-009507513-1509USA012687

PATIENT
  Age: 24 Year
  Sex: Female
  Weight: 46.26 kg

DRUGS (1)
  1. NEXPLANON [Suspect]
     Active Substance: ETONOGESTREL
     Dosage: 68 MG/ONE ROD EVERY THREE YEARS
     Route: 059
     Dates: start: 20150921

REACTIONS (3)
  - No adverse event [Unknown]
  - Product quality issue [Unknown]
  - Device difficult to use [Recovered/Resolved]

NARRATIVE: CASE EVENT DATE: 20150921
